FAERS Safety Report 9667917 (Version 2)
Quarter: 2013Q4

REPORT INFORMATION
  Report Type: Report from Study
  Country: DE (occurrence: DE)
  Receive Date: 20131104
  Receipt Date: 20131104
  Transmission Date: 20140711
  Serious: Yes (Life-Threatening)
  Sender: FDA-Public Use
  Company Number: PHHO2005DE06792

PATIENT
  Sex: 0

DRUGS (1)
  1. CGP 57148B [Suspect]
     Indication: DERMATOFIBROSARCOMA PROTUBERANS
     Dosage: 300 MG, BID
     Route: 048
     Dates: start: 20050315, end: 20050418

REACTIONS (2)
  - Angina pectoris [Recovered/Resolved]
  - Chest pain [Recovered/Resolved]
